FAERS Safety Report 14356300 (Version 1)
Quarter: 2018Q1

REPORT INFORMATION
  Report Type: Spontaneous
  Country: US (occurrence: US)
  Receive Date: 20180105
  Receipt Date: 20180105
  Transmission Date: 20180509
  Serious: No
  Sender: FDA-Public Use
  Company Number: US-ALLERGAN-1747183US

PATIENT
  Sex: Female

DRUGS (1)
  1. KYBELLA [Suspect]
     Active Substance: DEOXYCHOLIC ACID
     Indication: PRODUCT USED FOR UNKNOWN INDICATION
     Dosage: UNK, SINGLE
     Route: 058

REACTIONS (5)
  - Injection site erythema [Unknown]
  - Injection site swelling [Unknown]
  - Injection site hypoaesthesia [Unknown]
  - Injection site bruising [Unknown]
  - Injection site pain [Unknown]
